FAERS Safety Report 13808029 (Version 1)
Quarter: 2017Q3

REPORT INFORMATION
  Report Type: Spontaneous
  Country: US (occurrence: US)
  Receive Date: 20170728
  Receipt Date: 20170728
  Transmission Date: 20171127
  Serious: Yes (Other)
  Sender: FDA-Public Use
  Company Number: US-ASTRAZENECA-2017SE74210

PATIENT
  Age: 65 Year
  Sex: Female

DRUGS (6)
  1. IBRANCE [Suspect]
     Active Substance: PALBOCICLIB
     Indication: BREAST CANCER METASTATIC
     Route: 048
  2. ARIMIDEX [Suspect]
     Active Substance: ANASTROZOLE
     Indication: OESTROGEN THERAPY
     Route: 048
  3. XGEVA [Concomitant]
     Active Substance: DENOSUMAB
     Indication: BONE DISORDER
     Dates: end: 201705
  4. IBRANCE [Suspect]
     Active Substance: PALBOCICLIB
     Indication: BREAST CANCER METASTATIC
     Route: 048
     Dates: start: 20160210
  5. LETROZOLE. [Suspect]
     Active Substance: LETROZOLE
     Indication: ADJUVANT THERAPY
     Route: 048
     Dates: start: 20160210
  6. LETROZOLE. [Suspect]
     Active Substance: LETROZOLE
     Indication: BLOOD OESTROGEN
     Route: 048
     Dates: start: 20160210

REACTIONS (18)
  - Organising pneumonia [Unknown]
  - Nail pitting [Not Recovered/Not Resolved]
  - Staphylococcal infection [Unknown]
  - Radiation pneumonitis [Unknown]
  - Pain [Unknown]
  - Bone pain [Unknown]
  - Dyspnoea [Unknown]
  - Infection [Unknown]
  - Metastases to bone [Unknown]
  - Pathological fracture [Unknown]
  - White blood cell count decreased [Not Recovered/Not Resolved]
  - Red blood cell count decreased [Unknown]
  - Heart rate increased [Unknown]
  - Nail discolouration [Not Recovered/Not Resolved]
  - Haematocrit decreased [Unknown]
  - Urinary tract infection [Unknown]
  - Pneumonia [Unknown]
  - Onychoclasis [Unknown]

NARRATIVE: CASE EVENT DATE: 20170111
